FAERS Safety Report 4315066-7 (Version None)
Quarter: 2004Q1

REPORT INFORMATION
  Report Type: 
  Country: None (occurrence: None)
  Receive Date: 20040310
  Receipt Date: 20040301
  Transmission Date: 20041129
  Serious: Yes (Hospitalization, Disabling)
  Sender: FDA-Public Use
  Company Number: PHFR2004GB01266

PATIENT
  Age: 50 Year
  Sex: Male

DRUGS (7)
  1. CLOZAPINE [Suspect]
     Indication: SCHIZOPHRENIA
     Route: 048
     Dates: start: 20030811, end: 20030906
  2. PAROXETINE HCL [Concomitant]
     Indication: DEPRESSION
     Dosage: 30MG/DAY
     Route: 048
  3. VALPROATE SODIUM [Concomitant]
     Indication: DEPRESSION
     Dosage: 1.5 G/DAY
     Route: 048
  4. PROCYCLIDINE [Concomitant]
     Indication: EXTRAPYRAMIDAL DISORDER
     Dosage: 5 MG, BID
  5. DIAZEPAM [Concomitant]
     Indication: AGITATION
     Dosage: 5 MG, BID
     Route: 048
     Dates: start: 20010522
  6. AUGMENTIN BD [Concomitant]
     Indication: LOWER RESPIRATORY TRACT INFECTION
     Dosage: 375 MG, TID
     Route: 048
     Dates: start: 20030902, end: 20030909
  7. HALOPERIDOL [Concomitant]
     Dosage: 1MG BID + PRN 3MG UP TO BID
     Route: 048

REACTIONS (3)
  - COLITIS ULCERATIVE [None]
  - INFLAMMATORY BOWEL DISEASE [None]
  - INTESTINAL OBSTRUCTION [None]
